FAERS Safety Report 20168508 (Version 7)
Quarter: 2022Q2

REPORT INFORMATION
  Report Type: Spontaneous
  Country: ES (occurrence: ES)
  Receive Date: 20211210
  Receipt Date: 20220517
  Transmission Date: 20220721
  Serious: Yes (Hospitalization, Other)
  Sender: FDA-Public Use
  Company Number: ES-PHARMAMAR-2021PM000561

PATIENT
  Age: 56 Year
  Sex: Male

DRUGS (26)
  1. IRINOTECAN [Suspect]
     Active Substance: IRINOTECAN
     Indication: Small cell lung cancer
     Dosage: UNK (3 WEEK,D1D8Q3W)
     Route: 042
  2. IRINOTECAN [Suspect]
     Active Substance: IRINOTECAN
     Dosage: 300 MILLIGRAM, EVERY THREE WEEKS (124.2 MILLIGRAM, D1D8Q3W )
     Route: 042
     Dates: start: 20211111, end: 20211111
  3. IRINOTECAN [Suspect]
     Active Substance: IRINOTECAN
     Dosage: 150 MILLIGRAM, 3 WEEK (150 MG, EVERY 3 WEEKS (DAY ONE, DAY 8, EVERY 3 WEEKS)
     Route: 065
     Dates: start: 20211111, end: 20211111
  4. IRINOTECAN [Suspect]
     Active Substance: IRINOTECAN
     Dosage: 248.4 MILLIGRAM, EVERY THREE WEEKS (124.2 MILLIGRAM, D1D8Q3W )
     Route: 042
     Dates: start: 20211130
  5. IRINOTECAN [Suspect]
     Active Substance: IRINOTECAN
     Dosage: 124.5 MILLIGRAM, 3 WEEK (124.2 MG, EVERY 3 WEEKS (124.2 MILLIGRAM, DAY 1, DAY 8, EVERY 3 WEEKS)
     Route: 065
     Dates: start: 20211130
  6. IRINOTECAN [Suspect]
     Active Substance: IRINOTECAN
     Dosage: UNK, CYCLICAL (CYCLIC (CYCLIC D1-D8 EVERY 3 WEEKS)
     Route: 042
     Dates: start: 20211130
  7. LURBINECTEDIN [Suspect]
     Active Substance: LURBINECTEDIN
     Indication: Small cell lung cancer
     Dosage: UNK, CYCLICAL (CYCLIC  3 WEEK,D1Q3W)
     Route: 042
  8. LURBINECTEDIN [Suspect]
     Active Substance: LURBINECTEDIN
     Dosage: 4 MILLIGRAM
     Route: 042
     Dates: start: 20211111, end: 20211111
  9. LURBINECTEDIN [Suspect]
     Active Substance: LURBINECTEDIN
     Dosage: 3.31 MILLIGRAM, EVERY 3 WEEKS (3.31 MILLIGRAM, D1Q3W )
     Route: 042
     Dates: start: 20211130
  10. ENALAPRIL [Concomitant]
     Active Substance: ENALAPRIL
     Indication: Hypertension
     Dosage: UNK
     Route: 048
     Dates: start: 2015
  11. FERPLEX [Concomitant]
     Indication: Anaemia
     Dosage: UNK
     Route: 065
     Dates: start: 20190917
  12. HYDROCHLOROTHIAZIDE [Concomitant]
     Active Substance: HYDROCHLOROTHIAZIDE
     Indication: Hypertension
     Dosage: UNK
     Route: 065
     Dates: start: 2015
  13. METFORMIN HYDROCHLORIDE [Concomitant]
     Active Substance: METFORMIN HYDROCHLORIDE
     Indication: Type 2 diabetes mellitus
     Dosage: UNK, TWO TIMES A DAY
     Route: 048
     Dates: start: 20190917
  14. OMEPRAZOLE [Concomitant]
     Active Substance: OMEPRAZOLE
     Indication: Prophylaxis
     Dosage: 20 MILLIGRAM
     Route: 048
     Dates: start: 20190819
  15. ACETAMINOPHEN [Concomitant]
     Active Substance: ACETAMINOPHEN
     Indication: Abdominal pain
     Dosage: 1 GRAM
     Route: 048
  16. TAMSULOSIN [Concomitant]
     Active Substance: TAMSULOSIN
     Indication: Benign prostatic hyperplasia
     Dosage: 0.4 MILLIGRAM
     Route: 065
  17. RIFAXIMIN [Concomitant]
     Active Substance: RIFAXIMIN
     Indication: Prophylaxis
     Dosage: UNK
     Route: 065
     Dates: start: 20200626
  18. VILDAGLIPTIN [Concomitant]
     Active Substance: VILDAGLIPTIN
     Indication: Type 2 diabetes mellitus
     Dosage: UNK
     Route: 065
     Dates: start: 20190917
  19. TRAMADOL [Concomitant]
     Active Substance: TRAMADOL
     Indication: Pain
     Dosage: 50 MILLIGRAM, 3 TIMES A DAY
     Route: 048
  20. TRAMADOL [Concomitant]
     Active Substance: TRAMADOL
     Dosage: 50 MILLIGRAM, ONCE A DAY
     Route: 048
  21. METOCLOPRAMIDE [Concomitant]
     Active Substance: METOCLOPRAMIDE
     Indication: Nausea
     Dosage: 10 MILLIGRAM/8H PRN
     Route: 065
  22. METOCLOPRAMIDE [Concomitant]
     Active Substance: METOCLOPRAMIDE
     Indication: Vomiting
     Dosage: 30 MILLIGRAM, ONCE A DAY (10 MG, 3X/DAY, AS NEEDED)
     Route: 065
  23. TOLVAPTAN [Concomitant]
     Active Substance: TOLVAPTAN
     Indication: Inappropriate antidiuretic hormone secretion
     Dosage: 7.5 MILLIGRAM, ONCE A DAY
     Route: 048
  24. ENALAPRIL MALEATE\HYDROCHLOROTHIAZIDE [Concomitant]
     Active Substance: ENALAPRIL MALEATE\HYDROCHLOROTHIAZIDE
     Indication: Hypertension
     Dosage: UNK ( 20/12.5 MG )
     Route: 048
  25. EMPAGLIFLOZIN;METFORMIN HYDROCHLORIDE [Concomitant]
     Indication: Product used for unknown indication
     Dosage: 1000/12,5 MILLIGRAM, TWO TIMES A DAY
     Route: 048
  26. EMPAGLIFLOZIN;METFORMIN HYDROCHLORIDE [Concomitant]
     Dosage: UNK, ONCE A DAY (2X/DAY)
     Route: 048

REACTIONS (2)
  - Intestinal obstruction [Recovered/Resolved]
  - Neutropenia [Recovered/Resolved]

NARRATIVE: CASE EVENT DATE: 20211117
